FAERS Safety Report 6186533-9 (Version None)
Quarter: 2009Q2

REPORT INFORMATION
  Report Type: 
  Country: None (occurrence: None)
  Receive Date: 20090507
  Receipt Date: 20090507
  Transmission Date: 20091009
  Serious: Yes (Other)
  Sender: FDA-Public Use
  Company Number: None

PATIENT
  Age: 32 Year
  Sex: Female
  Weight: 58.9676 kg

DRUGS (1)
  1. WARFARIN SODIUM [Suspect]
     Dosage: 16 MG ONCE DAILY

REACTIONS (3)
  - FATIGUE [None]
  - HYPOAESTHESIA [None]
  - HYPOTENSION [None]
